FAERS Safety Report 8043337-X (Version None)
Quarter: 2012Q1

REPORT INFORMATION
  Report Type: 
  Country: None (occurrence: None)
  Receive Date: 20120112
  Receipt Date: 20120106
  Transmission Date: 20120608
  Serious: Yes (Other)
  Sender: FDA-Public Use
  Company Number: JP-GLAXOSMITHKLINE-B0774539A

PATIENT
  Sex: Male
  Weight: 12 kg

DRUGS (3)
  1. ALKERAN [Suspect]
     Indication: CORD BLOOD TRANSPLANT THERAPY
     Dosage: 70MGM2 PER DAY
     Route: 042
     Dates: start: 20100109, end: 20100110
  2. UNKNOWN DRUG [Suspect]
     Indication: CORD BLOOD TRANSPLANT THERAPY
     Dosage: 300MGM2 PER DAY
     Route: 065
     Dates: start: 20100111, end: 20100112
  3. TACROLIMUS [Concomitant]
     Indication: IMMUNOSUPPRESSION
     Dosage: .25MG PER DAY
     Route: 042
     Dates: start: 20100114

REACTIONS (10)
  - BLOOD LACTATE DEHYDROGENASE INCREASED [None]
  - MUCOSAL INFLAMMATION [None]
  - ASPARTATE AMINOTRANSFERASE INCREASED [None]
  - RASH [None]
  - ALANINE AMINOTRANSFERASE INCREASED [None]
  - FEBRILE NEUTROPENIA [None]
  - BACTERIAL INFECTION [None]
  - DIARRHOEA [None]
  - PYREXIA [None]
  - STOMATITIS [None]
